FAERS Safety Report 26091447 (Version 1)
Quarter: 2025Q4

REPORT INFORMATION
  Report Type: Spontaneous
  Country: US (occurrence: None)
  Receive Date: 20251125
  Receipt Date: 20251125
  Transmission Date: 20260117
  Serious: Yes (Hospitalization)
  Sender: FDA-CTU
  Company Number: None

PATIENT
  Age: 57 Year
  Sex: Female

DRUGS (1)
  1. TERIFLUNOMIDE [Suspect]
     Active Substance: TERIFLUNOMIDE
     Indication: Multiple sclerosis
     Dosage: 14MG ONCE DAILY

REACTIONS (15)
  - Blood glucose increased [None]
  - Nausea [None]
  - Apathy [None]
  - Asthenia [None]
  - Decreased appetite [None]
  - Peroneal nerve palsy [None]
  - Muscle spasms [None]
  - Anxiety [None]
  - Depression [None]
  - Gait disturbance [None]
  - Muscle spasms [None]
  - Panic attack [None]
  - Dyspnoea [None]
  - Neuralgia [None]
  - Insomnia [None]
